FAERS Safety Report 8901852 (Version 1)
Quarter: 2012Q4

REPORT INFORMATION
  Report Type: Spontaneous
  Country: US (occurrence: None)
  Receive Date: 20121109
  Receipt Date: 20121109
  Transmission Date: 20130627
  Serious: Yes (Disabling)
  Sender: FDA-Public Use
  Company Number: None

PATIENT
  Age: 46 Year
  Sex: Female
  Weight: 54.43 kg

DRUGS (1)
  1. CIPROFLOXACIN [Suspect]
     Indication: SINUSITIS
     Route: 048
     Dates: start: 20070226, end: 20070228

REACTIONS (21)
  - Insomnia [None]
  - Headache [None]
  - Balance disorder [None]
  - Fatigue [None]
  - Body temperature increased [None]
  - Pain [None]
  - Tinnitus [None]
  - Blindness [None]
  - Deafness [None]
  - Anxiety [None]
  - Nervous system disorder [None]
  - Autonomic nervous system imbalance [None]
  - Rhabdomyolysis [None]
  - Muscle atrophy [None]
  - Arthralgia [None]
  - Tendon pain [None]
  - Gait disturbance [None]
  - Muscle spasticity [None]
  - Clonus [None]
  - Irritable bowel syndrome [None]
  - Upper motor neurone lesion [None]
